FAERS Safety Report 22038347 (Version 1)
Quarter: 2023Q1

REPORT INFORMATION
  Report Type: Spontaneous
  Country: IN (occurrence: IN)
  Receive Date: 20230227
  Receipt Date: 20230227
  Transmission Date: 20230418
  Serious: Yes (Death, Hospitalization, Other)
  Sender: FDA-Public Use
  Company Number: IN-STERISCIENCE B.V.-2023-ST-000901

PATIENT
  Age: 29 Year
  Sex: Female

DRUGS (10)
  1. MEROPENEM [Suspect]
     Active Substance: MEROPENEM
     Indication: Implant site infection
     Dosage: UNK
     Route: 065
  2. MEROPENEM [Suspect]
     Active Substance: MEROPENEM
     Indication: Haematological infection
  3. MEROPENEM [Suspect]
     Active Substance: MEROPENEM
     Indication: Delftia acidovorans infection
  4. MEROPENEM [Suspect]
     Active Substance: MEROPENEM
     Indication: Bacterial sepsis
  5. ADRIAMYCIN [Concomitant]
     Active Substance: DOXORUBICIN HYDROCHLORIDE
     Indication: Breast cancer
     Dosage: UNK, CYCLE (RECEIVED 2 CYCLES)
     Route: 065
  6. CYCLOPHOSPHAMIDE [Concomitant]
     Active Substance: CYCLOPHOSPHAMIDE
     Indication: Breast cancer
     Dosage: UNK, CYCLE (RECEIVED 2 CYCLES)
     Route: 065
  7. AMPHOTERICIN B [Concomitant]
     Active Substance: AMPHOTERICIN B
     Indication: Evidence based treatment
     Dosage: UNK
     Route: 065
  8. TEICOPLANIN [Concomitant]
     Active Substance: TEICOPLANIN
     Indication: Evidence based treatment
     Dosage: UNK
     Route: 065
  9. NOREPINEPHRINE [Concomitant]
     Active Substance: NOREPINEPHRINE
     Indication: Respiratory distress
     Dosage: UNK
     Route: 065
  10. NOREPINEPHRINE [Concomitant]
     Active Substance: NOREPINEPHRINE
     Indication: Tachycardia

REACTIONS (1)
  - Drug ineffective [Fatal]
